FAERS Safety Report 9863027 (Version 1)
Quarter: 2014Q1

REPORT INFORMATION
  Report Type: Report from Study
  Country: US (occurrence: US)
  Receive Date: 20140203
  Receipt Date: 20140203
  Transmission Date: 20141002
  Serious: Yes (Other)
  Sender: FDA-Public Use
  Company Number: US-ROCHE-1341710

PATIENT
  Age: 12 Year
  Sex: Female
  Weight: 41.7 kg

DRUGS (2)
  1. NUTROPIN AQ [Suspect]
     Indication: TURNER^S SYNDROME
     Route: 058
  2. PREMARIN [Concomitant]
     Route: 048

REACTIONS (4)
  - Hypoacusis [Unknown]
  - Injection site pain [Unknown]
  - Blood follicle stimulating hormone increased [Unknown]
  - Blood luteinising hormone increased [Unknown]
